FAERS Safety Report 8295234 (Version 3)
Quarter: 2013Q2

REPORT INFORMATION
  Report Type: Spontaneous
  Country: GB (occurrence: GB)
  Receive Date: 20111216
  Receipt Date: 20130626
  Transmission Date: 20140414
  Serious: Yes (Other)
  Sender: FDA-Public Use
  Company Number: GB-PFIZER INC-2011303969

PATIENT
  Age: 83 Year
  Sex: Female
  Weight: 64.9 kg

DRUGS (3)
  1. AMLODIPINE BESILATE [Suspect]
     Dosage: 5 MG, UNK
     Route: 048
  2. BECONASE [Concomitant]
  3. BENDROFLUMETHIAZIDE [Concomitant]
     Dosage: 2.5 MG, UNK
     Route: 048

REACTIONS (6)
  - Dizziness [Not Recovered/Not Resolved]
  - Swelling face [Not Recovered/Not Resolved]
  - Headache [Not Recovered/Not Resolved]
  - Local swelling [Not Recovered/Not Resolved]
  - Photophobia [Not Recovered/Not Resolved]
  - Sinus disorder [Not Recovered/Not Resolved]
